FAERS Safety Report 10082101 (Version 1)
Quarter: 2014Q2

REPORT INFORMATION
  Report Type: Spontaneous
  Country: US (occurrence: None)
  Receive Date: 20140414
  Receipt Date: 20140414
  Transmission Date: 20141212
  Serious: Yes (Life-Threatening, Disabling)
  Sender: FDA-Public Use
  Company Number: None

PATIENT
  Age: 76 Year
  Sex: Male
  Weight: 102.97 kg

DRUGS (5)
  1. LANTUS [Suspect]
     Indication: DIABETES MELLITUS
     Dosage: 100U/1CC ?FROM 1U-30U-40UNITS?AS OFTEN THEY  NEEDED?HOSPITAL IS HIDING A NURSES THERE?TRANSIENT DIABETES
     Dates: start: 20131101, end: 20131104
  2. LANTUS [Suspect]
     Indication: BLOOD GLUCOSE INCREASED
     Dosage: 100U/1CC ?FROM 1U-30U-40UNITS?AS OFTEN THEY  NEEDED?HOSPITAL IS HIDING A NURSES THERE?TRANSIENT DIABETES
     Dates: start: 20131101, end: 20131104
  3. METFORMIN [Concomitant]
  4. SYNTHROID [Concomitant]
  5. VITAMIN E [Concomitant]

REACTIONS (3)
  - Thyroid disorder [None]
  - Treatment failure [None]
  - Blood glucose abnormal [None]
